FAERS Safety Report 5357431-5 (Version None)
Quarter: 2007Q2

REPORT INFORMATION
  Report Type: 
  Country: None (occurrence: None)
  Receive Date: 20070614
  Receipt Date: 20070608
  Transmission Date: 20071010
  Serious: Yes (Disabling, Other)
  Sender: FDA-Public Use
  Company Number: CA-ASTRAZENECA-2007UW13364

PATIENT
  Age: 41 Year
  Sex: Male

DRUGS (6)
  1. SEROQUEL [Suspect]
     Indication: SLEEP DISORDER
     Route: 048
     Dates: start: 20050101
  2. RISPERIDONE [Suspect]
     Route: 048
     Dates: start: 20050101
  3. ALTACE [Concomitant]
  4. ASAPHEN [Concomitant]
     Route: 048
  5. ZYPREXA [Concomitant]
  6. MODECATE [Concomitant]

REACTIONS (3)
  - EJACULATION FAILURE [None]
  - WEIGHT DECREASED [None]
  - WEIGHT INCREASED [None]
